FAERS Safety Report 4616051-8 (Version None)
Quarter: 2005Q1

REPORT INFORMATION
  Report Type: 
  Country: None (occurrence: None)
  Receive Date: 20050321
  Receipt Date: 20050303
  Transmission Date: 20050727
  Serious: Yes (Other)
  Sender: FDA-Public Use
  Company Number: S05-FIN-01003-01

PATIENT
  Age: 35 Year
  Sex: Male

DRUGS (5)
  1. CITALOPRAM HYDROBROMIDE [Suspect]
     Indication: ANTISOCIAL BEHAVIOUR
     Dosage: 10 MG QD PO
     Route: 048
     Dates: start: 20050111, end: 20050207
  2. CITALOPRAM HYDROBROMIDE [Suspect]
     Indication: ANXIETY
     Dosage: 10 MG QD PO
     Route: 048
     Dates: start: 20050111, end: 20050207
  3. CITALOPRAM HYDROBROMIDE [Suspect]
     Indication: DEPRESSION
     Dosage: 10 MG QD PO
     Route: 048
     Dates: start: 20050111, end: 20050207
  4. DOXAL (DOXEPIN HYDROCHLORIDE) [Concomitant]
  5. ANTABUS (DISULFIRAM) [Concomitant]

REACTIONS (2)
  - DIARRHOEA [None]
  - IMPAIRED WORK ABILITY [None]
